FAERS Safety Report 18688252 (Version 3)
Quarter: 2022Q2

REPORT INFORMATION
  Report Type: Report from Study
  Country: CA (occurrence: CA)
  Receive Date: 20201231
  Receipt Date: 20220608
  Transmission Date: 20220721
  Serious: Yes (Other)
  Sender: FDA-Public Use
  Company Number: CA-NOVARTISPH-NVSC2020CA340294

PATIENT
  Sex: Female

DRUGS (2)
  1. ILARIS [Suspect]
     Active Substance: CANAKINUMAB
     Indication: Muckle-Wells syndrome
     Dosage: 250 UNK, EVERY 4 WEEK
     Route: 058
     Dates: start: 20131129
  2. ILARIS [Suspect]
     Active Substance: CANAKINUMAB
     Dosage: 250 UNK, EVERY 4 WEEK
     Route: 058
     Dates: start: 202204

REACTIONS (5)
  - Arrhythmia [Unknown]
  - Polyarthritis [Not Recovered/Not Resolved]
  - Pyrexia [Unknown]
  - Headache [Unknown]
  - Fatigue [Not Recovered/Not Resolved]
